FAERS Safety Report 10029780 (Version 1)
Quarter: 2014Q1

REPORT INFORMATION
  Report Type: Spontaneous
  Country: US (occurrence: None)
  Receive Date: 20140319
  Receipt Date: 20140319
  Transmission Date: 20141002
  Serious: Yes (Hospitalization, Other)
  Sender: FDA-Public Use
  Company Number: 2014SA030707

PATIENT
  Age: 53 Year
  Sex: Male

DRUGS (6)
  1. ACETYLSALICYLIC ACID / CAFFEINE / PARACETAMOL [Suspect]
     Indication: PAIN
  2. OXYCODONE [Suspect]
     Indication: PAIN
     Route: 048
  3. IBUPROFEN [Concomitant]
  4. MORPHINE [Concomitant]
  5. LORAZEPAM [Concomitant]
  6. HYDROCODONE [Concomitant]

REACTIONS (6)
  - Extradural haematoma [None]
  - Spinal cord compression [None]
  - Intentional drug misuse [None]
  - Paraparesis [None]
  - Muscular weakness [None]
  - Drug dependence [None]
